FAERS Safety Report 4909952-4 (Version None)
Quarter: 2006Q1

REPORT INFORMATION
  Report Type: 
  Country: None (occurrence: None)
  Receive Date: 20060208
  Receipt Date: 20060126
  Transmission Date: 20060701
  Serious: Yes (Hospitalization, Other)
  Sender: FDA-Public Use
  Company Number: 2006014607

PATIENT
  Age: 35 Year
  Sex: Female

DRUGS (1)
  1. SOMAVERT [Suspect]
     Indication: ACROMEGALY
     Dosage: 20 MG (20 MG)
     Dates: start: 20050201

REACTIONS (3)
  - BILE DUCT STONE [None]
  - CHOLELITHIASIS [None]
  - HEPATIC ENZYME INCREASED [None]
